FAERS Safety Report 6772303-7 (Version None)
Quarter: 2010Q2

REPORT INFORMATION
  Report Type: 
  Country: None (occurrence: None)
  Receive Date: 20100616
  Receipt Date: 20090526
  Transmission Date: 20101027
  Serious: No
  Sender: FDA-Public Use
  Company Number: US-ASTRAZENECA-2009UW13558

PATIENT
  Age: 8 Year
  Sex: Female

DRUGS (7)
  1. PULMICORT FLEXHALER [Suspect]
     Indication: ASTHMA
     Dosage: 90 UG 2 PUFFS EVERY OTHER DAY
     Route: 055
  2. PULMICORT FLEXHALER [Suspect]
     Indication: COUGH
     Dosage: 90 UG 2 PUFFS EVERY OTHER DAY
     Route: 055
  3. PULMICORT FLEXHALER [Suspect]
     Indication: RHINORRHOEA
     Dosage: 90 UG 2 PUFFS EVERY OTHER DAY
     Route: 055
  4. PULMICORT FLEXHALER [Suspect]
     Dosage: 90 UG 2 PUFFS TWO TIMES A DAY
     Route: 055
  5. PULMICORT FLEXHALER [Suspect]
     Dosage: 90 UG 2 PUFFS TWO TIMES A DAY
     Route: 055
  6. PULMICORT FLEXHALER [Suspect]
     Dosage: 90 UG 2 PUFFS TWO TIMES A DAY
     Route: 055
  7. ALBUTEROL [Concomitant]

REACTIONS (1)
  - ABDOMINAL PAIN UPPER [None]
